FAERS Safety Report 17035701 (Version 1)
Quarter: 2019Q4

REPORT INFORMATION
  Report Type: Spontaneous
  Country: US (occurrence: US)
  Receive Date: 20191115
  Receipt Date: 20191115
  Transmission Date: 20200122
  Serious: Yes (Other)
  Sender: FDA-Public Use
  Company Number: US-TEVA-2019-US-1138788

PATIENT

DRUGS (1)
  1. TRAZODONE HYDROCHLORIDE-TEVA [Suspect]
     Active Substance: TRAZODONE HYDROCHLORIDE
     Route: 048

REACTIONS (8)
  - Near death experience [Unknown]
  - Foreign body in respiratory tract [Unknown]
  - Product physical issue [Unknown]
  - Choking [Unknown]
  - Product coating issue [Unknown]
  - Product design issue [Unknown]
  - Respiratory arrest [Unknown]
  - Product use complaint [Unknown]
